FAERS Safety Report 7322942-X (Version None)
Quarter: 2011Q1

REPORT INFORMATION
  Report Type: 
  Country: None (occurrence: None)
  Receive Date: 20110301
  Receipt Date: 20110217
  Transmission Date: 20110831
  Serious: Yes (Other)
  Sender: FDA-Public Use
  Company Number: PHHY2010US73788

PATIENT
  Sex: Female

DRUGS (18)
  1. POTASSIUM [Concomitant]
     Dosage: UNK
  2. COLACE [Concomitant]
     Dosage: UNK
  3. SYNTHROID [Concomitant]
     Dosage: UNK
  4. AMITIZA [Concomitant]
     Dosage: UNK
  5. LASIX [Concomitant]
     Dosage: UNK
  6. LACTULOSE [Concomitant]
     Dosage: UNK
  7. VITAMIN D [Concomitant]
     Dosage: UNK
  8. LAXATIVES [Concomitant]
  9. TRILEPTAL [Suspect]
     Indication: BIPOLAR DISORDER
     Dosage: 300 MG, BID
     Route: 048
     Dates: start: 20080501, end: 20101001
  10. GEODON [Suspect]
     Indication: BIPOLAR DISORDER
     Dosage: 60 MG, QD
     Route: 048
     Dates: start: 20080501
  11. ZIPRASIDONE HYDROCHLORIDE [Concomitant]
     Dosage: 80MG
  12. GEODON [Suspect]
     Dosage: 60 MG, QD
     Route: 048
  13. PRAVASTATIN [Concomitant]
     Indication: BLOOD CHOLESTEROL INCREASED
     Dosage: UNK
  14. FISH OIL [Concomitant]
     Dosage: UNK
  15. SENOKOT [Concomitant]
     Dosage: UNK
  16. EFFEXOR [Suspect]
     Indication: DEPRESSION
     Dosage: 300 MG, QHS
     Dates: start: 20080501
  17. CALCIUM [Concomitant]
     Dosage: UNK
  18. ZIPRASIDONE HYDROCHLORIDE [Concomitant]
     Dosage: 60MG

REACTIONS (6)
  - MEMORY IMPAIRMENT [None]
  - OEDEMA PERIPHERAL [None]
  - MANIA [None]
  - WEIGHT INCREASED [None]
  - URINARY RETENTION [None]
  - CONSTIPATION [None]
